FAERS Safety Report 4952215-1 (Version None)
Quarter: 2006Q1

REPORT INFORMATION
  Report Type: 
  Country: None (occurrence: None)
  Receive Date: 20060317
  Receipt Date: 20060309
  Transmission Date: 20060701
  Serious: Yes (Hospitalization, Other)
  Sender: FDA-Public Use
  Company Number: 2006-02-0984

PATIENT
  Age: 46 Year
  Sex: Female
  Weight: 59 kg

DRUGS (2)
  1. TEMODAL [Suspect]
     Indication: ASTROCYTOMA
     Dosage: 120 MG ORAL
     Route: 048
     Dates: start: 20050616
  2. RADIATION THERAPY NO DOSE FORM [Suspect]
     Indication: ASTROCYTOMA
     Dosage: X-RAY THERAPY
     Dates: start: 20050616

REACTIONS (6)
  - BRAIN OEDEMA [None]
  - COMA [None]
  - DEPRESSED LEVEL OF CONSCIOUSNESS [None]
  - MALIGNANT NEOPLASM PROGRESSION [None]
  - RASH PAPULAR [None]
  - SWELLING FACE [None]
